FAERS Safety Report 23692619 (Version 1)
Quarter: 2024Q1

REPORT INFORMATION
  Report Type: Spontaneous
  Country: US (occurrence: None)
  Receive Date: 20240330
  Receipt Date: 20240330
  Transmission Date: 20240410
  Serious: Yes (Hospitalization)
  Sender: FDA-Public Use
  Company Number: None

PATIENT
  Age: 65 Year
  Sex: Female
  Weight: 100.8 kg

DRUGS (3)
  1. DUPIXENT [Suspect]
     Active Substance: DUPILUMAB
     Indication: Eczema
     Dosage: 2  INJECTIONS EVERY 2 WEEKS SUBCUTNEOUS?
     Route: 058
     Dates: start: 20231118, end: 20240218
  2. TYLENOL [Concomitant]
  3. fruits and vegetables caplets [Concomitant]

REACTIONS (3)
  - Paralysis [None]
  - Arthralgia [None]
  - Myalgia [None]

NARRATIVE: CASE EVENT DATE: 20240218
